FAERS Safety Report 5523241-9 (Version None)
Quarter: 2007Q4

REPORT INFORMATION
  Report Type: 
  Country: None (occurrence: None)
  Receive Date: 20071116
  Receipt Date: 20071116
  Transmission Date: 20080405
  Serious: No
  Sender: FDA-Public Use
  Company Number: None

PATIENT
  Sex: Female
  Weight: 64.54 kg

DRUGS (4)
  1. CISPLATIN [Suspect]
     Dosage: 84 MG
  2. DOXORUBICIN HYDROCHLORIDE [Suspect]
     Dosage: 75 MG
  3. G-CSF (FILGRASTIM, AMGEN) [Suspect]
     Dosage: 6 MG
  4. TAXOL [Suspect]

REACTIONS (14)
  - ASCITES [None]
  - BLOOD CALCIUM DECREASED [None]
  - BLOOD MAGNESIUM DECREASED [None]
  - BLOOD SODIUM DECREASED [None]
  - DYSPNOEA [None]
  - FLUID INTAKE REDUCED [None]
  - FLUID RETENTION [None]
  - HYPOKALAEMIA [None]
  - LEUKOCYTOSIS [None]
  - ORAL INTAKE REDUCED [None]
  - PLEURAL EFFUSION [None]
  - THROMBOCYTOPENIA [None]
  - URINE OUTPUT DECREASED [None]
  - WHITE BLOOD CELL COUNT DECREASED [None]
